FAERS Safety Report 16846335 (Version 1)
Quarter: 2019Q3

REPORT INFORMATION
  Report Type: Spontaneous
  Country: CN (occurrence: CN)
  Receive Date: 20190924
  Receipt Date: 20190924
  Transmission Date: 20191005
  Serious: Yes (Other)
  Sender: FDA-Public Use
  Company Number: PHHY2019CN219585

PATIENT
  Age: 56 Year
  Sex: Male
  Weight: 75 kg

DRUGS (3)
  1. PERINDOPRIL TERT-BUTYLAMINE [Concomitant]
     Active Substance: PERINDOPRIL ERBUMINE
     Indication: BLOOD PRESSURE DECREASED
     Dosage: 2 MG, QID
     Route: 048
     Dates: start: 20190826, end: 20190904
  2. CLOPIDOGREL HYDROGEN SULFATE [Concomitant]
     Active Substance: CLOPIDOGREL BISULFATE
     Indication: ANTIPLATELET THERAPY
     Dosage: 75 MG, QID
     Route: 048
     Dates: start: 20190826, end: 20190904
  3. FLUVASTATIN SODIUM. [Suspect]
     Active Substance: FLUVASTATIN SODIUM
     Indication: LIPIDS ABNORMAL
     Dosage: 80 MG, QID
     Route: 048
     Dates: start: 20190826

REACTIONS (1)
  - Aspartate aminotransferase increased [Recovering/Resolving]

NARRATIVE: CASE EVENT DATE: 20190827
